FAERS Safety Report 26045669 (Version 1)
Quarter: 2025Q4

REPORT INFORMATION
  Report Type: Spontaneous
  Country: US (occurrence: US)
  Receive Date: 20251114
  Receipt Date: 20251114
  Transmission Date: 20260117
  Serious: Yes (Life-Threatening, Hospitalization)
  Sender: MYLAN
  Company Number: US-MYLANLABS-2025M1095576

PATIENT
  Age: 67 Year
  Sex: Female

DRUGS (52)
  1. CITALOPRAM [Suspect]
     Active Substance: CITALOPRAM
     Indication: Major depression
     Dosage: UNK, PILLS, ESTIMATED 90-DAY SUPPLY, 3,600 MG
  2. CITALOPRAM [Suspect]
     Active Substance: CITALOPRAM
     Dosage: UNK, PILLS, ESTIMATED 90-DAY SUPPLY, 3,600 MG
     Route: 065
  3. CITALOPRAM [Suspect]
     Active Substance: CITALOPRAM
     Dosage: UNK, PILLS, ESTIMATED 90-DAY SUPPLY, 3,600 MG
     Route: 065
  4. CITALOPRAM [Suspect]
     Active Substance: CITALOPRAM
     Dosage: UNK, PILLS, ESTIMATED 90-DAY SUPPLY, 3,600 MG
  5. EPINEPHRINE [Suspect]
     Active Substance: EPINEPHRINE
     Indication: Cardiogenic shock
     Dosage: 0.5 MICROGRAM/KILOGRAM, QMINUTE
  6. EPINEPHRINE [Suspect]
     Active Substance: EPINEPHRINE
     Indication: Vasoplegia syndrome
     Dosage: 0.5 MICROGRAM/KILOGRAM, QMINUTE
     Route: 065
  7. EPINEPHRINE [Suspect]
     Active Substance: EPINEPHRINE
     Dosage: 0.5 MICROGRAM/KILOGRAM, QMINUTE
     Route: 065
  8. EPINEPHRINE [Suspect]
     Active Substance: EPINEPHRINE
     Dosage: 0.5 MICROGRAM/KILOGRAM, QMINUTE
  9. NOREPINEPHRINE [Suspect]
     Active Substance: NOREPINEPHRINE
     Indication: Cardiogenic shock
     Dosage: 0.5 MICROGRAM/KILOGRAM, QMINUTE
  10. NOREPINEPHRINE [Suspect]
     Active Substance: NOREPINEPHRINE
     Indication: Vasoplegia syndrome
     Dosage: 0.5 MICROGRAM/KILOGRAM, QMINUTE
     Route: 065
  11. NOREPINEPHRINE [Suspect]
     Active Substance: NOREPINEPHRINE
     Dosage: 0.5 MICROGRAM/KILOGRAM, QMINUTE
     Route: 065
  12. NOREPINEPHRINE [Suspect]
     Active Substance: NOREPINEPHRINE
     Dosage: 0.5 MICROGRAM/KILOGRAM, QMINUTE
  13. CALCIUM [Suspect]
     Active Substance: CALCIUM
     Indication: Haemodynamic instability
     Dosage: UNK
  14. CALCIUM [Suspect]
     Active Substance: CALCIUM
     Dosage: UNK
     Route: 065
  15. CALCIUM [Suspect]
     Active Substance: CALCIUM
     Dosage: UNK
     Route: 065
  16. CALCIUM [Suspect]
     Active Substance: CALCIUM
     Dosage: UNK
  17. INSULIN NOS [Suspect]
     Active Substance: INSULIN NOS
     Indication: Ejection fraction decreased
     Dosage: 10 UNITS/KG, QH
  18. INSULIN NOS [Suspect]
     Active Substance: INSULIN NOS
     Dosage: 10 UNITS/KG, QH
     Route: 065
  19. INSULIN NOS [Suspect]
     Active Substance: INSULIN NOS
     Dosage: 10 UNITS/KG, QH
     Route: 065
  20. INSULIN NOS [Suspect]
     Active Substance: INSULIN NOS
     Dosage: 10 UNITS/KG, QH
  21. METHYLENE BLUE [Suspect]
     Active Substance: METHYLENE BLUE
     Indication: Cardiogenic shock
     Dosage: UNK
  22. METHYLENE BLUE [Suspect]
     Active Substance: METHYLENE BLUE
     Indication: Vasoplegia syndrome
     Dosage: UNK
     Route: 065
  23. METHYLENE BLUE [Suspect]
     Active Substance: METHYLENE BLUE
     Dosage: UNK
     Route: 065
  24. METHYLENE BLUE [Suspect]
     Active Substance: METHYLENE BLUE
     Dosage: UNK
  25. SODIUM BICARBONATE [Suspect]
     Active Substance: SODIUM BICARBONATE
     Indication: Cardiogenic shock
     Dosage: UNK, INFUSION
  26. SODIUM BICARBONATE [Suspect]
     Active Substance: SODIUM BICARBONATE
     Indication: Vasoplegia syndrome
     Dosage: UNK, INFUSION
     Route: 065
  27. SODIUM BICARBONATE [Suspect]
     Active Substance: SODIUM BICARBONATE
     Dosage: UNK, INFUSION
     Route: 065
  28. SODIUM BICARBONATE [Suspect]
     Active Substance: SODIUM BICARBONATE
     Dosage: UNK, INFUSION
  29. DOPAMINE [Suspect]
     Active Substance: DOPAMINE HYDROCHLORIDE
     Indication: Cardiogenic shock
     Dosage: UNK
  30. DOPAMINE [Suspect]
     Active Substance: DOPAMINE HYDROCHLORIDE
     Indication: Vasoplegia syndrome
     Dosage: UNK
     Route: 065
  31. DOPAMINE [Suspect]
     Active Substance: DOPAMINE HYDROCHLORIDE
     Dosage: UNK
     Route: 065
  32. DOPAMINE [Suspect]
     Active Substance: DOPAMINE HYDROCHLORIDE
     Dosage: UNK
  33. PHENYLEPHRINE [Suspect]
     Active Substance: PHENYLEPHRINE
     Indication: Cardiogenic shock
     Dosage: 2 MICROGRAM/KILOGRAM, QMINUTE
  34. PHENYLEPHRINE [Suspect]
     Active Substance: PHENYLEPHRINE
     Indication: Vasoplegia syndrome
     Dosage: 2 MICROGRAM/KILOGRAM, QMINUTE
     Route: 065
  35. PHENYLEPHRINE [Suspect]
     Active Substance: PHENYLEPHRINE
     Dosage: 2 MICROGRAM/KILOGRAM, QMINUTE
     Route: 065
  36. PHENYLEPHRINE [Suspect]
     Active Substance: PHENYLEPHRINE
     Dosage: 2 MICROGRAM/KILOGRAM, QMINUTE
  37. VASOPRESSIN [Suspect]
     Active Substance: VASOPRESSIN
     Indication: Cardiogenic shock
     Dosage: 0.06 UNITS/MIN
  38. VASOPRESSIN [Suspect]
     Active Substance: VASOPRESSIN
     Indication: Vasoplegia syndrome
     Dosage: 0.06 UNITS/MIN
     Route: 065
  39. VASOPRESSIN [Suspect]
     Active Substance: VASOPRESSIN
     Dosage: 0.06 UNITS/MIN
     Route: 065
  40. VASOPRESSIN [Suspect]
     Active Substance: VASOPRESSIN
     Dosage: 0.06 UNITS/MIN
  41. AMLODIPINE [Concomitant]
     Active Substance: AMLODIPINE BESYLATE
     Indication: Hypertension
     Dosage: UNK
  42. AMLODIPINE [Concomitant]
     Active Substance: AMLODIPINE BESYLATE
     Dosage: UNK
     Route: 065
  43. AMLODIPINE [Concomitant]
     Active Substance: AMLODIPINE BESYLATE
     Dosage: UNK
     Route: 065
  44. AMLODIPINE [Concomitant]
     Active Substance: AMLODIPINE BESYLATE
     Dosage: UNK
  45. ATORVASTATIN [Concomitant]
     Active Substance: ATORVASTATIN
     Indication: Product used for unknown indication
     Dosage: UNK
  46. ATORVASTATIN [Concomitant]
     Active Substance: ATORVASTATIN
     Dosage: UNK
     Route: 065
  47. ATORVASTATIN [Concomitant]
     Active Substance: ATORVASTATIN
     Dosage: UNK
     Route: 065
  48. ATORVASTATIN [Concomitant]
     Active Substance: ATORVASTATIN
     Dosage: UNK
  49. LEVETIRACETAM [Concomitant]
     Active Substance: LEVETIRACETAM
     Indication: Epilepsy
     Dosage: UNK
  50. LEVETIRACETAM [Concomitant]
     Active Substance: LEVETIRACETAM
     Dosage: UNK
     Route: 065
  51. LEVETIRACETAM [Concomitant]
     Active Substance: LEVETIRACETAM
     Dosage: UNK
     Route: 065
  52. LEVETIRACETAM [Concomitant]
     Active Substance: LEVETIRACETAM
     Dosage: UNK

REACTIONS (10)
  - Oliguria [Recovered/Resolved]
  - Nodal arrhythmia [Recovered/Resolved]
  - Seizure [Recovered/Resolved]
  - Ejection fraction decreased [Recovered/Resolved]
  - Cardiogenic shock [Recovered/Resolved]
  - Vasoplegia syndrome [Recovered/Resolved]
  - Acute kidney injury [Recovered/Resolved]
  - Drug ineffective [Unknown]
  - Overdose [Recovered/Resolved]
  - Treatment noncompliance [Unknown]
